FAERS Safety Report 6695948-1 (Version None)
Quarter: 2010Q2

REPORT INFORMATION
  Report Type: 
  Country: None (occurrence: None)
  Receive Date: 20100412
  Receipt Date: 20100125
  Transmission Date: 20101027
  Serious: Yes (Other)
  Sender: FDA-Public Use
  Company Number: AUR-APL-2010-00261

PATIENT
  Age: 45 Year
  Sex: Male
  Weight: 95.2554 kg

DRUGS (5)
  1. METOPROLOL TARTRATE [Suspect]
     Indication: HYPERTENSION
     Dosage: 25MG BID ORAL
     Route: 048
  2. LYRICA [Suspect]
     Indication: NEUROPATHY PERIPHERAL
     Dosage: 75MG BID ORAL
     Route: 048
     Dates: start: 20091201
  3. NEURONTIN [Suspect]
     Indication: NEUROPATHY PERIPHERAL
     Dosage: 300MG TID ORAL
     Route: 048
     Dates: end: 20091201
  4. DEPAKOTE [Suspect]
     Indication: EPILEPSY
     Dosage: 250MG QID ORAL
     Route: 048
     Dates: start: 20090101
  5. CLONAZEPAM [Suspect]
     Indication: NERVOUSNESS
     Dosage: 2MG BID ORAL
     Route: 048

REACTIONS (7)
  - CHEST PAIN [None]
  - DIARRHOEA [None]
  - DRUG INEFFECTIVE [None]
  - DRUG INTERACTION [None]
  - DRY SKIN [None]
  - MYOCARDIAL INFARCTION [None]
  - WEIGHT INCREASED [None]
